FAERS Safety Report 8622497-3 (Version None)
Quarter: 2012Q3

REPORT INFORMATION
  Report Type: 
  Country: None (occurrence: None)
  Receive Date: 20120827
  Receipt Date: 20120823
  Transmission Date: 20120928
  Serious: No
  Sender: FDA-Public Use
  Company Number: US-PFIZER INC-2012207890

PATIENT
  Age: 34 Year
  Sex: Male

DRUGS (2)
  1. LOMOTIL [Suspect]
     Indication: GASTRIC DISORDER
  2. LOMOTIL [Suspect]
     Indication: DIARRHOEA
     Dosage: UNK

REACTIONS (1)
  - BLOOD ALKALINE PHOSPHATASE INCREASED [None]
